FAERS Safety Report 4884395-0 (Version None)
Quarter: 2006Q1

REPORT INFORMATION
  Report Type: 
  Country: None (occurrence: None)
  Receive Date: 20060117
  Receipt Date: 20060117
  Transmission Date: 20060701
  Serious: Yes (Other)
  Sender: FDA-Public Use
  Company Number: None

PATIENT
  Age: 85 Year
  Sex: Female

DRUGS (10)
  1. LORATADINE 10 MG (BRITE-LITE) [Suspect]
     Indication: RHINITIS ALLERGIC
     Dosage: 10 MG QD PO
     Route: 048
     Dates: start: 20040601, end: 20040923
  2. LISINOPRIL [Concomitant]
  3. TEMAZEPAM [Concomitant]
  4. ROBITUSSIN [Concomitant]
  5. ASPIRIN [Concomitant]
  6. ATROVENT [Concomitant]
  7. PLETAL [Concomitant]
  8. CORDARONE [Concomitant]
  9. LOPRESSOR [Concomitant]
  10. FURSOMIDE [Concomitant]

REACTIONS (1)
  - ELECTROCARDIOGRAM QT PROLONGED [None]
